FAERS Safety Report 9744139 (Version 1)
Quarter: 2013Q4

REPORT INFORMATION
  Report Type: Spontaneous
  Country: IT (occurrence: IT)
  Receive Date: 20131210
  Receipt Date: 20131210
  Transmission Date: 20140711
  Serious: Yes (Hospitalization)
  Sender: FDA-Public Use
  Company Number: PHHY2013IT143414

PATIENT
  Sex: Female

DRUGS (5)
  1. FUROSEMIDE [Suspect]
     Dosage: 500 MG
     Route: 048
  2. LANOXIN [Suspect]
     Indication: ATRIAL FIBRILLATION
     Dosage: 0.25 MG, QD
     Route: 048
     Dates: start: 20130101, end: 20130419
  3. COUMADIN//WARFARIN SODIUM [Concomitant]
  4. CITALOPRAM [Concomitant]
  5. VALSARTAN [Concomitant]

REACTIONS (1)
  - Cardiac failure [Recovering/Resolving]
